FAERS Safety Report 7652557-5 (Version None)
Quarter: 2011Q3

REPORT INFORMATION
  Report Type: 
  Country: None (occurrence: None)
  Receive Date: 20110803
  Receipt Date: 20110802
  Transmission Date: 20111222
  Serious: Yes (Hospitalization, Other)
  Sender: FDA-Public Use
  Company Number: DE-BRISTOL-MYERS SQUIBB COMPANY-15614175

PATIENT
  Age: 69 Year
  Sex: Male
  Weight: 60 kg

DRUGS (13)
  1. OXYGESIC [Concomitant]
     Dates: start: 20110208
  2. FOLSAN [Concomitant]
     Dates: start: 20110208
  3. NOVALGIN [Concomitant]
     Dates: start: 20110208
  4. CISPLATIN [Suspect]
     Indication: NON-SMALL CELL LUNG CANCER
     Dosage: PATIENT WITHDREW FROM STUDY ON 18MAR11
     Route: 065
     Dates: start: 20110225, end: 20110225
  5. AMITRIPTYLINE HCL [Concomitant]
     Dates: start: 20110222
  6. GEMZAR [Suspect]
     Indication: NON-SMALL CELL LUNG CANCER
     Dosage: LAST RECEIVED 04MAR2011,PATIENT WITHDREW FROM STUDY ON 18MAR11
     Route: 065
     Dates: start: 20110225, end: 20110304
  7. PANTOPRAZOLE [Concomitant]
     Dates: start: 20110208
  8. MOVIPREP [Concomitant]
     Dates: start: 20110218
  9. BERODUAL [Concomitant]
     Dates: start: 19900101
  10. LYRICA [Concomitant]
     Dates: start: 20110208
  11. NALOXONE [Concomitant]
     Dates: start: 20110208
  12. SPIRIVA [Concomitant]
     Dates: start: 19900101
  13. PREDNISOLONE [Concomitant]
     Dates: start: 20110208

REACTIONS (3)
  - NEUTROPENIA [None]
  - DEHYDRATION [None]
  - STOMATITIS [None]
